FAERS Safety Report 9719047 (Version 1)
Quarter: 2013Q4

REPORT INFORMATION
  Report Type: Spontaneous
  Country: US (occurrence: US)
  Receive Date: 20131127
  Receipt Date: 20131127
  Transmission Date: 20140711
  Serious: Yes (Other)
  Sender: FDA-Public Use
  Company Number: US-GILEAD-2013-0088570

PATIENT
  Age: 49 Year
  Sex: Male

DRUGS (1)
  1. COMPLERA [Suspect]
     Dosage: UNK
     Dates: start: 201308, end: 201309

REACTIONS (3)
  - Viral load increased [Unknown]
  - Migraine [Recovered/Resolved]
  - Insomnia [Recovered/Resolved]
